FAERS Safety Report 8986808 (Version 1)
Quarter: 2012Q4

REPORT INFORMATION
  Report Type: Spontaneous
  Country: US (occurrence: None)
  Receive Date: 20121115
  Receipt Date: 20121115
  Transmission Date: 20130627
  Serious: Yes (Hospitalization)
  Sender: FDA-Public Use
  Company Number: 32088

PATIENT
  Age: 51 Year
  Sex: Female
  Weight: 131.54 kg

DRUGS (20)
  1. GLASSIA [Suspect]
     Indication: ALPHA-1 ANTI-TRYPSIN DEFICIENCY
     Route: 042
     Dates: start: 20120730, end: 20121031
  2. TENORMIN [Concomitant]
  3. LASIX [Concomitant]
  4. XANAX [Concomitant]
  5. HYDROXYZINE [Concomitant]
  6. PERCOCET [Concomitant]
  7. ZANAFIEX [Concomitant]
  8. NEXIUM [Concomitant]
  9. SYNTHYROID [Concomitant]
  10. KLOR-CON [Concomitant]
  11. CELEXA [Concomitant]
  12. LITHIUM [Concomitant]
  13. CLARITIN [Concomitant]
  14. VENTOLIN [Concomitant]
  15. CIPRO [Concomitant]
  16. FLONASEC [Concomitant]
  17. GABAPENTIN [Concomitant]
  18. DULERA [Concomitant]
  19. DIPROLENE TOPICAL [Concomitant]
  20. DUONEB [Concomitant]

REACTIONS (7)
  - Arthralgia [None]
  - Pain [None]
  - Procedural pain [None]
  - Drug dose omission [None]
  - Hypersensitivity [None]
  - Sepsis [None]
  - Infusion related reaction [None]
